FAERS Safety Report 5197464-5 (Version None)
Quarter: 2006Q4

REPORT INFORMATION
  Report Type: 
  Country: None (occurrence: None)
  Receive Date: 20060927
  Receipt Date: 20060627
  Transmission Date: 20070319
  Serious: No
  Sender: FDA-Public Use
  Company Number: US-CVT-061401

PATIENT
  Age: 85 Year
  Sex: Female
  Weight: 103.9 kg

DRUGS (9)
  1. RANEXA [Suspect]
     Indication: ANGINA PECTORIS
     Dosage: 500 MG, BID, ORAL
     Route: 048
     Dates: start: 20060522, end: 20060601
  2. FUROSEMIDE/00032061 (FUROSEMIDE) [Concomitant]
  3. DIOVAN/01319601 (VALSARTAN) [Concomitant]
  4. METOPROLOL/00376901/ (METOPROLOL) [Concomitant]
  5. PRAVACHOL [Concomitant]
  6. IMDUR [Concomitant]
  7. ASPIRIN [Concomitant]
  8. PLAVIX [Concomitant]
  9. SYNTHROID [Concomitant]

REACTIONS (1)
  - BLOOD PRESSURE INCREASED [None]
